FAERS Safety Report 8950499 (Version 1)
Quarter: 2012Q4

REPORT INFORMATION
  Report Type: Spontaneous
  Country: US (occurrence: None)
  Receive Date: 20121204
  Receipt Date: 20121204
  Transmission Date: 20130627
  Serious: Yes (Other)
  Sender: FDA-Public Use
  Company Number: None

PATIENT
  Age: 57 Year
  Sex: Male
  Weight: 77.11 kg

DRUGS (1)
  1. ATORVASTATIN [Suspect]
     Indication: HIGH CHOLESTEROL
     Dates: start: 20121012, end: 20121130

REACTIONS (5)
  - Abdominal pain lower [None]
  - Change of bowel habit [None]
  - Diarrhoea [None]
  - Abnormal faeces [None]
  - Mucous stools [None]
